FAERS Safety Report 9840511 (Version 1)
Quarter: 2013Q4

REPORT INFORMATION
  Report Type: Spontaneous
  Country: US (occurrence: None)
  Receive Date: 20131211
  Receipt Date: 20131211
  Transmission Date: 20140711
  Serious: No
  Sender: FDA-Public Use
  Company Number: 20130826

PATIENT
  Age: 31 Year
  Sex: Female
  Weight: 68.04 kg

DRUGS (1)
  1. ALINIA [Suspect]
     Indication: PARASITIC GASTROENTERITIS
     Route: 048
     Dates: start: 20130612

REACTIONS (2)
  - Urticaria [None]
  - Hypersensitivity [None]
